FAERS Safety Report 4859946-2 (Version None)
Quarter: 2005Q4

REPORT INFORMATION
  Report Type: 
  Country: None (occurrence: None)
  Receive Date: 20051219
  Receipt Date: 20050720
  Transmission Date: 20060501
  Serious: Yes (Life-Threatening, Hospitalization)
  Sender: FDA-Public Use
  Company Number: DE-BRISTOL-MYERS SQUIBB COMPANY-13045380

PATIENT
  Age: 43 Year
  Sex: Male

DRUGS (3)
  1. SUSTIVA [Suspect]
     Indication: HIV INFECTION
     Route: 048
     Dates: start: 20040524, end: 20050702
  2. EMTRIVA [Suspect]
     Indication: HIV INFECTION
     Route: 048
     Dates: start: 20040524, end: 20050702
  3. VIREAD [Suspect]
     Indication: HIV INFECTION
     Route: 048
     Dates: start: 20040524, end: 20050702

REACTIONS (10)
  - ALCOHOL WITHDRAWAL SYNDROME [None]
  - BRAIN STEM SYNDROME [None]
  - CANDIDIASIS [None]
  - HYPOGLYCAEMIA [None]
  - ILEUS PARALYTIC [None]
  - KORSAKOFF'S PSYCHOSIS NON-ALCOHOLIC [None]
  - LACTIC ACIDOSIS [None]
  - PANCREATITIS ACUTE [None]
  - PNEUMONIA [None]
  - STAPHYLOCOCCAL INFECTION [None]
